FAERS Safety Report 8873317 (Version 5)
Quarter: 2014Q2

REPORT INFORMATION
  Report Type: Spontaneous
  Country: US (occurrence: US)
  Receive Date: 20121030
  Receipt Date: 20140421
  Transmission Date: 20141212
  Serious: Yes (Hospitalization, Disabling, Other)
  Sender: FDA-Public Use
  Company Number: US-MERCK-1210USA007238

PATIENT
  Sex: Female
  Weight: 75.96 kg

DRUGS (8)
  1. FOSAMAX [Suspect]
     Indication: OSTEOPENIA
     Dosage: 10 MG, QD
     Route: 048
     Dates: start: 199809, end: 200102
  2. FOSAMAX [Suspect]
     Indication: OSTEOPOROSIS
     Dosage: 70 MG, QW
     Route: 048
     Dates: start: 200103, end: 200504
  3. FOSAMAX PLUS D [Suspect]
     Indication: OSTEOPENIA
     Dosage: 70 MG, QW
     Route: 048
     Dates: start: 200504, end: 2007
  4. FOSAMAX PLUS D [Suspect]
     Indication: OSTEOPOROSIS
     Dosage: 70/2800 MG, QW
     Route: 048
     Dates: start: 2007, end: 201010
  5. CALCIUM (UNSPECIFIED) [Concomitant]
     Indication: OSTEOPOROSIS
  6. VITAMIN D (UNSPECIFIED) [Concomitant]
     Indication: OSTEOPOROSIS
  7. PREMARIN [Concomitant]
     Indication: HYSTERECTOMY
  8. PREMARIN [Concomitant]
     Indication: POSTMENOPAUSE

REACTIONS (30)
  - Femur fracture [Unknown]
  - Joint injury [Not Recovered/Not Resolved]
  - Spinal fusion surgery [Unknown]
  - Shoulder operation [Unknown]
  - Shoulder operation [Unknown]
  - Closed fracture manipulation [Unknown]
  - Fracture delayed union [Unknown]
  - Foot fracture [Unknown]
  - Hypertension [Unknown]
  - Osteoarthritis [Unknown]
  - Carpal tunnel syndrome [Unknown]
  - Carpal tunnel syndrome [Unknown]
  - Hyperlipidaemia [Unknown]
  - Appendicectomy [Unknown]
  - Fracture delayed union [Unknown]
  - Central venous pressure increased [Unknown]
  - Cardiac disorder [Unknown]
  - Vision blurred [Unknown]
  - Migraine with aura [Unknown]
  - Left ventricular hypertrophy [Unknown]
  - Diastolic dysfunction [Unknown]
  - Mitral valve incompetence [Unknown]
  - Anxiety [Unknown]
  - Dyspnoea [Unknown]
  - Fibrocystic breast disease [Unknown]
  - Dermal cyst [Unknown]
  - Back pain [Unknown]
  - Pain in extremity [Unknown]
  - Oedema peripheral [Unknown]
  - Gastrooesophageal reflux disease [Unknown]
